FAERS Safety Report 9234281 (Version 2)
Quarter: 2013Q3

REPORT INFORMATION
  Report Type: Spontaneous
  Country: BR (occurrence: BR)
  Receive Date: 20130416
  Receipt Date: 20130719
  Transmission Date: 20140515
  Serious: Yes (Life-Threatening, Other)
  Sender: FDA-Public Use
  Company Number: BR-ROCHE-1089036

PATIENT
  Age: 41 Year
  Sex: Female
  Weight: 64 kg

DRUGS (6)
  1. AVASTIN [Suspect]
     Indication: COLORECTAL CANCER METASTATIC
     Route: 042
     Dates: start: 20120319, end: 20120627
  2. DIAZEPAM [Suspect]
     Indication: COLORECTAL CANCER METASTATIC
     Route: 065
  3. PACLITAXEL [Concomitant]
     Indication: OVARIAN CANCER
     Route: 042
     Dates: start: 20120319, end: 20120627
  4. PACLITAXEL [Concomitant]
     Indication: BREAST CANCER
  5. PACLITAXEL [Concomitant]
     Indication: NON-SMALL CELL LUNG CANCER
  6. PACLITAXEL [Concomitant]
     Indication: KAPOSI^S SARCOMA

REACTIONS (3)
  - Haemorrhage [Recovered/Resolved]
  - Disease progression [Not Recovered/Not Resolved]
  - Hypersensitivity [Unknown]
